FAERS Safety Report 20642551 (Version 3)
Quarter: 2022Q2

REPORT INFORMATION
  Report Type: Spontaneous
  Country: US (occurrence: US)
  Receive Date: 20220328
  Receipt Date: 20220421
  Transmission Date: 20220721
  Serious: No
  Sender: FDA-Public Use
  Company Number: US-BAUSCH-BL-2022-007181

PATIENT
  Age: 75 Year
  Sex: Female
  Weight: 72.640 kg

DRUGS (2)
  1. ERYTHROMYCIN [Suspect]
     Active Substance: ERYTHROMYCIN
     Indication: Dacryostenosis acquired
     Route: 065
     Dates: end: 20220317
  2. ERYTHROMYCIN [Suspect]
     Active Substance: ERYTHROMYCIN
     Route: 065

REACTIONS (4)
  - Application site pain [Unknown]
  - Foreign body in eye [Unknown]
  - Application site erythema [Unknown]
  - Product container issue [Unknown]
